FAERS Safety Report 18170054 (Version 1)
Quarter: 2020Q3

REPORT INFORMATION
  Report Type: Spontaneous
  Country: GB (occurrence: GB)
  Receive Date: 20200819
  Receipt Date: 20200819
  Transmission Date: 20201103
  Serious: Yes (Life-Threatening, Hospitalization)
  Sender: FDA-Public Use
  Company Number: GB-TEVA-2020-GB-1814964

PATIENT
  Age: 52 Year
  Sex: Male

DRUGS (1)
  1. PREDNISOLONE. [Suspect]
     Active Substance: PREDNISOLONE
     Indication: ASTHMA
     Dosage: 10 MILLIGRAM DAILY;
     Route: 065

REACTIONS (2)
  - Necrotising fasciitis [Recovered/Resolved]
  - Beta haemolytic streptococcal infection [Recovered/Resolved]
